FAERS Safety Report 16722941 (Version 1)
Quarter: 2019Q3

REPORT INFORMATION
  Report Type: Other
  Country: GB (occurrence: GB)
  Receive Date: 20190821
  Receipt Date: 20190821
  Transmission Date: 20191005
  Serious: Yes (Other)
  Sender: FDA-Public Use
  Company Number: GB-EMCURE PHARMACEUTICALS LTD-2019-EPL-0571

PATIENT
  Age: 54 Year
  Sex: Female
  Weight: 68 kg

DRUGS (4)
  1. LISINOPRIL. [Suspect]
     Active Substance: LISINOPRIL
     Indication: ESSENTIAL HYPERTENSION
     Dosage: 20 MILLIGRAM
     Route: 048
     Dates: start: 20181115, end: 20190712
  2. BUDESONIDE. [Concomitant]
     Active Substance: BUDESONIDE
     Dosage: BREATH-ACUTATED DRY POWDER INHLER
  3. LANSOPRAZOLE. [Concomitant]
     Active Substance: LANSOPRAZOLE
     Dosage: 30 MILLIGRAM
  4. ESTRIOL [Concomitant]
     Active Substance: ESTRIOL
     Dosage: INTRAVAGINAL

REACTIONS (2)
  - Hyponatraemia [Unknown]
  - Aphasia [Recovered/Resolved]

NARRATIVE: CASE EVENT DATE: 20181115
